FAERS Safety Report 8031549-0 (Version None)
Quarter: 2012Q1

REPORT INFORMATION
  Report Type: 
  Country: None (occurrence: None)
  Receive Date: 20120109
  Receipt Date: 20111229
  Transmission Date: 20120608
  Serious: Yes (Other)
  Sender: FDA-Public Use
  Company Number: GB-NOVOPROD-342286

PATIENT

DRUGS (15)
  1. METFORMIN HCL [Concomitant]
     Indication: DIABETES MELLITUS
     Dosage: 500 MG, UNK
  2. VICTOZA [Suspect]
     Indication: DIABETES MELLITUS
     Dosage: 0.6 MG, QD
     Route: 058
     Dates: start: 20110526, end: 20111118
  3. BISOPROLOL FUMARATE [Concomitant]
     Indication: ANGINA PECTORIS
     Dosage: 2.5 MG, QD
  4. GLYCERYL TRINITRATE [Concomitant]
     Indication: ANGINA PECTORIS
     Dosage: 400 A?G, UNK
  5. BISOPROLOL FUMARATE [Concomitant]
     Dosage: 5 MG, QD
  6. QUININE SULFATE [Concomitant]
     Dosage: 200 MG, UNK
  7. SIMVASTATIN [Concomitant]
     Dosage: 200 MG, QD
  8. ADIZEM [Concomitant]
     Indication: ANGINA PECTORIS
     Dosage: 5 MG, BID
     Dates: start: 20110823
  9. NEFOPAM [Concomitant]
  10. VICTOZA [Suspect]
     Dosage: 1.2 MG, QD
     Route: 058
     Dates: end: 20111118
  11. ACIDEX                             /00550802/ [Concomitant]
     Dosage: 10 ML, QID
  12. FERROUS FUMARATE [Concomitant]
     Dosage: 210 MG, BID
  13. GLICLAZIDE [Concomitant]
     Dosage: 80 MG, QD
  14. GLICLAZIDE [Concomitant]
     Dosage: 40 MG, QD
  15. LANSOPRAZOLE [Concomitant]
     Dosage: 30 MG, TID

REACTIONS (3)
  - NAUSEA [None]
  - HAEMATEMESIS [None]
  - VOMITING [None]
